FAERS Safety Report 8013181-8 (Version None)
Quarter: 2011Q4

REPORT INFORMATION
  Report Type: 
  Country: None (occurrence: None)
  Receive Date: 20111229
  Receipt Date: 20111222
  Transmission Date: 20120403
  Serious: Yes (Other)
  Sender: FDA-Public Use
  Company Number: US-B.I. PHARMACEUTICALS,INC./RIDGEFIELD-2011-BP-26595PF

PATIENT
  Sex: Male

DRUGS (3)
  1. GLUCOTROL XL [Suspect]
  2. LIPITOR [Concomitant]
  3. SPIRIVA [Suspect]

REACTIONS (3)
  - PROSTATOMEGALY [None]
  - MICROALBUMINURIA [None]
  - GLOMERULAR FILTRATION RATE DECREASED [None]
